FAERS Safety Report 7548303-6 (Version None)
Quarter: 2011Q2

REPORT INFORMATION
  Report Type: 
  Country: None (occurrence: None)
  Receive Date: 20110615
  Receipt Date: 20110603
  Transmission Date: 20111010
  Serious: No
  Sender: FDA-Public Use
  Company Number: US-PFIZER INC-2011095881

PATIENT
  Sex: Female

DRUGS (5)
  1. ENBREL [Suspect]
     Indication: PSORIASIS
     Dosage: 50 MG, 2 TIMES/WK
     Dates: start: 20110318
  2. SULFASALAZINE [Suspect]
     Dosage: UNK
  3. SULFASALAZINE [Suspect]
     Dosage: UNK
  4. ENBREL [Suspect]
     Indication: PSORIATIC ARTHROPATHY
  5. ENBREL [Suspect]

REACTIONS (5)
  - ONYCHOMADESIS [None]
  - PSORIASIS [None]
  - INJECTION SITE PAIN [None]
  - ONYCHOCLASIS [None]
  - DRUG INEFFECTIVE [None]
